FAERS Safety Report 5735906-4 (Version None)
Quarter: 2008Q2

REPORT INFORMATION
  Report Type: 
  Country: None (occurrence: None)
  Receive Date: 20080509
  Receipt Date: 20080509
  Transmission Date: 20081010
  Serious: No
  Sender: FDA-Public Use
  Company Number: None

PATIENT
  Sex: Female
  Weight: 74.8435 kg

DRUGS (1)
  1. CREST PRO HEALTH ALCOHOL FREE PROCTER + GAMBLE [Suspect]
     Indication: BREATH ODOUR
     Dosage: 20 ML 2 X DAY PO
     Route: 048
     Dates: start: 20070210, end: 20080507

REACTIONS (2)
  - DYSGEUSIA [None]
  - FEELING ABNORMAL [None]
